FAERS Safety Report 8292832 (Version 4)
Quarter: 2013Q4

REPORT INFORMATION
  Report Type: Report from Study
  Country: TR (occurrence: TR)
  Receive Date: 20111215
  Receipt Date: 20131204
  Transmission Date: 20140711
  Serious: Yes (Hospitalization)
  Sender: FDA-Public Use
  Company Number: TR-ROCHE-1019623

PATIENT
  Age: 61 Year
  Sex: Male
  Weight: 82 kg

DRUGS (3)
  1. PEG-INTERFERON ALFA 2A [Suspect]
     Indication: CHRONIC HEPATITIS B
     Dosage: LAST DOSE PRIOR TO SAE 13/MAR/2012
     Route: 058
     Dates: start: 20100518
  2. BLINDED TENOFOVIR [Suspect]
     Indication: CHRONIC HEPATITIS B
     Dosage: LAST DOSE PRIOR TO SAE 25/MAR/2012
     Route: 048
     Dates: start: 20100518
  3. RISEDRONATE SODIUM [Concomitant]
     Route: 065
     Dates: start: 20090606

REACTIONS (4)
  - Bronchiectasis [Recovering/Resolving]
  - Cough [Recovering/Resolving]
  - Dyspnoea [Recovering/Resolving]
  - Bronchiectasis [Recovered/Resolved]
